FAERS Safety Report 6653942-0 (Version None)
Quarter: 2010Q1

REPORT INFORMATION
  Report Type: 
  Country: None (occurrence: None)
  Receive Date: 20100326
  Receipt Date: 20100104
  Transmission Date: 20100710
  Serious: No
  Sender: FDA-Public Use
  Company Number: US-BAUSCH-2010BL000071

PATIENT
  Age: 65 Year
  Sex: Female

DRUGS (5)
  1. BESIVANCE [Suspect]
     Indication: BLEPHARITIS
     Route: 047
     Dates: start: 20091130, end: 20091229
  2. BESIVANCE [Suspect]
     Indication: MEIBOMIAN GLAND DYSFUNCTION
     Route: 047
     Dates: start: 20091130, end: 20091229
  3. BESIVANCE [Suspect]
     Indication: OFF LABEL USE
     Route: 047
     Dates: start: 20091130, end: 20091229
  4. LOTEMAX [Suspect]
     Indication: BLEPHARITIS
     Route: 047
     Dates: start: 20091130, end: 20091229
  5. LOTEMAX [Suspect]
     Indication: MEIBOMIAN GLAND DYSFUNCTION
     Route: 047
     Dates: start: 20091130, end: 20091229

REACTIONS (2)
  - INCORRECT DRUG ADMINISTRATION DURATION [None]
  - KERATITIS [None]
